FAERS Safety Report 8139424-8 (Version None)
Quarter: 2012Q1

REPORT INFORMATION
  Report Type: 
  Country: None (occurrence: None)
  Receive Date: 20120215
  Receipt Date: 20120208
  Transmission Date: 20120608
  Serious: Yes (Other)
  Sender: FDA-Public Use
  Company Number: US-ROCHE-798795

PATIENT
  Sex: Male
  Weight: 86.26 kg

DRUGS (1)
  1. ACCUTANE [Suspect]
     Indication: ACNE
     Route: 065
     Dates: start: 19841001, end: 19850101

REACTIONS (5)
  - INTESTINAL OBSTRUCTION [None]
  - CROHN'S DISEASE [None]
  - ANXIETY [None]
  - INFLAMMATORY BOWEL DISEASE [None]
  - DEPRESSION [None]
